FAERS Safety Report 5475099-4 (Version None)
Quarter: 2007Q4

REPORT INFORMATION
  Report Type: 
  Country: None (occurrence: None)
  Receive Date: 20071002
  Receipt Date: 20070920
  Transmission Date: 20080405
  Serious: Yes (Other)
  Sender: FDA-Public Use
  Company Number: BR-PFIZER INC-2007066304

PATIENT
  Sex: Male
  Weight: 75 kg

DRUGS (4)
  1. CHAMPIX [Suspect]
     Indication: SMOKING CESSATION THERAPY
     Route: 048
  2. ENALAPRIL MALEATE [Concomitant]
  3. SOMALGIN [Concomitant]
  4. VASERETIC [Concomitant]

REACTIONS (13)
  - ABDOMINAL PAIN UPPER [None]
  - ABNORMAL FAECES [None]
  - ANAEMIA [None]
  - ANOREXIA [None]
  - DEPRESSION [None]
  - DIZZINESS [None]
  - EAR DISORDER [None]
  - GASTRITIS [None]
  - HAEMATEMESIS [None]
  - INFLUENZA [None]
  - NAUSEA [None]
  - PHARYNGEAL DISORDER [None]
  - THINKING ABNORMAL [None]
